FAERS Safety Report 9919698 (Version 2)
Quarter: 2014Q1

REPORT INFORMATION
  Report Type: Report from Study
  Country: FR (occurrence: FR)
  Receive Date: 20140224
  Receipt Date: 20140307
  Transmission Date: 20141002
  Serious: Yes (Hospitalization)
  Sender: FDA-Public Use
  Company Number: FR-BRISTOL-MYERS SQUIBB COMPANY-20207171

PATIENT
  Age: 46 Year
  Sex: Male
  Weight: 120 kg

DRUGS (6)
  1. REYATAZ CAPS 300 MG [Suspect]
     Indication: HIV INFECTION
     Dates: start: 20130107
  2. NORVIR [Suspect]
     Indication: HIV INFECTION
     Dates: start: 20130107
  3. TRUVADA [Suspect]
     Indication: HIV INFECTION
     Dosage: 1 DF=200MG/45 MG
     Dates: start: 20130107
  4. BACTRIM [Suspect]
     Indication: INFECTION PROPHYLAXIS
     Dosage: 1 DF= 400 MG/80 MG
     Dates: start: 20130305
  5. RAMIPRIL [Suspect]
     Indication: HYPERTENSION
     Dates: start: 20130413
  6. UVEDOSE [Suspect]
     Dosage: 1 DF=400 000 UI
     Dates: start: 20130725

REACTIONS (1)
  - Cystic lymphangioma [Unknown]
